FAERS Safety Report 5356371-5 (Version None)
Quarter: 2007Q2

REPORT INFORMATION
  Report Type: 
  Country: None (occurrence: None)
  Receive Date: 20070530
  Receipt Date: 20061023
  Transmission Date: 20071010
  Serious: Yes (Other)
  Sender: FDA-Public Use
  Company Number: US200609004841

PATIENT
  Age: 41 Year
  Sex: Male
  Weight: 88 kg

DRUGS (3)
  1. ZYPREXA [Suspect]
     Dosage: 20 MG
     Dates: start: 20030101, end: 20040101
  2. QUETIAPINE FUMARATE [Concomitant]
  3. TRAZODONE HCL [Concomitant]

REACTIONS (6)
  - BLOOD CHOLESTEROL INCREASED [None]
  - BLOOD TRIGLYCERIDES INCREASED [None]
  - DIABETES MELLITUS [None]
  - DIABETIC KETOACIDOSIS [None]
  - HYPERTENSION [None]
  - METABOLIC DISORDER [None]
